FAERS Safety Report 4289653-9 (Version None)
Quarter: 2004Q1

REPORT INFORMATION
  Report Type: 
  Country: None (occurrence: None)
  Receive Date: 20040206
  Receipt Date: 20040127
  Transmission Date: 20041129
  Serious: Yes (Hospitalization)
  Sender: FDA-Public Use
  Company Number: K200400102

PATIENT
  Age: 89 Year
  Sex: Female

DRUGS (4)
  1. ALTACE [Suspect]
     Dosage: 5 MG, QD, ORAL
     Route: 048
  2. FUROSEMIDE [Suspect]
     Dosage: 10 MG , QD, ORAL
     Route: 048
     Dates: start: 20030123
  3. NIFEDIPINE [Suspect]
     Dosage: 30 MG, QD, ORAL
     Route: 048
  4. EXELON [Suspect]
     Indication: DEMENTIA ALZHEIMER'S TYPE
     Dosage: 4.5 MG , QD, ORAL
     Route: 048

REACTIONS (5)
  - ATRIAL FIBRILLATION [None]
  - CREATININE RENAL CLEARANCE DECREASED [None]
  - FALL [None]
  - HUMERUS FRACTURE [None]
  - LOSS OF CONSCIOUSNESS [None]
